FAERS Safety Report 5081403-1 (Version None)
Quarter: 2006Q3

REPORT INFORMATION
  Report Type: 
  Country: None (occurrence: None)
  Receive Date: 20060811
  Receipt Date: 20060728
  Transmission Date: 20061208
  Serious: Yes (Hospitalization)
  Sender: FDA-Public Use
  Company Number: 2006001525

PATIENT
  Age: 56 Year
  Sex: Female
  Weight: 95.7 kg

DRUGS (2)
  1. ERLOTINIB HCL (TABLET) [Suspect]
     Indication: METASTATIC MALIGNANT MELANOMA
     Dosage: 150 MG (QD), ORAL
     Route: 048
     Dates: start: 20060329
  2. BEVACIZUMAB                (INJECTION FOR INFUSION) [Suspect]
     Indication: METASTATIC MALIGNANT MELANOMA
     Dosage: 960 MG (Q 2 WEEKS), INTRAVENOUS
     Route: 042

REACTIONS (12)
  - ABDOMINAL PAIN UPPER [None]
  - ASTHENIA [None]
  - CHROMATURIA [None]
  - GALLBLADDER DISORDER [None]
  - HEPATOMEGALY [None]
  - HYPERHIDROSIS [None]
  - HYPOTENSION [None]
  - METASTASES TO LIVER [None]
  - NAUSEA [None]
  - SPLENOMEGALY [None]
  - URINE FLOW DECREASED [None]
  - VOMITING [None]
